FAERS Safety Report 23465341 (Version 1)
Quarter: 2024Q1

REPORT INFORMATION
  Report Type: Spontaneous
  Country: US (occurrence: US)
  Receive Date: 20240201
  Receipt Date: 20240201
  Transmission Date: 20240410
  Serious: Yes (Other)
  Sender: FDA-Public Use
  Company Number: US-SUN PHARMACEUTICAL INDUSTRIES LTD-2024R1-428781

PATIENT
  Age: 29 Year
  Sex: Female

DRUGS (2)
  1. HYDROCORTISONE [Suspect]
     Active Substance: HYDROCORTISONE
     Indication: Infarction
     Dosage: 15 MILLIGRAM, DAILY
     Route: 048
  2. BETAMETHASONE [Suspect]
     Active Substance: BETAMETHASONE\BETAMETHASONE DIPROPIONATE
     Indication: Premature baby
     Route: 065

REACTIONS (2)
  - Exposure during pregnancy [Unknown]
  - Premature baby [Unknown]
